FAERS Safety Report 9651045 (Version 1)
Quarter: 2013Q4

REPORT INFORMATION
  Report Type: Spontaneous
  Country: US (occurrence: None)
  Receive Date: 20131028
  Receipt Date: 20131028
  Transmission Date: 20140711
  Serious: No
  Sender: FDA-Public Use
  Company Number: None

PATIENT
  Sex: 0

DRUGS (2)
  1. RISPERDAL [Suspect]
     Indication: DEPRESSION
     Dosage: LAST 4 YEARS
  2. SEROQUEL [Suspect]
     Indication: DEPRESSION
     Dosage: LAST 4 YEARS 8_0MG

REACTIONS (2)
  - Muscle tightness [None]
  - Myalgia [None]
